FAERS Safety Report 21481757 (Version 1)
Quarter: 2022Q4

REPORT INFORMATION
  Report Type: Spontaneous
  Country: AU (occurrence: AU)
  Receive Date: 20221020
  Receipt Date: 20221020
  Transmission Date: 20230113
  Serious: Yes (Other)
  Sender: FDA-Public Use
  Company Number: AU-BEH-2022150852

PATIENT
  Age: 88 Year
  Sex: Male

DRUGS (1)
  1. PRIVIGEN [Suspect]
     Active Substance: HUMAN IMMUNOGLOBULIN G
     Indication: Myasthenia gravis
     Dosage: 150 GRAM, TOT
     Route: 065
     Dates: start: 20220930, end: 20221004

REACTIONS (1)
  - Bicytopenia [Unknown]

NARRATIVE: CASE EVENT DATE: 20221002
